FAERS Safety Report 8785469 (Version 1)
Quarter: 2012Q4

REPORT INFORMATION
  Report Type: 
  Country: CO (occurrence: CO)
  Receive Date: 20120914
  Receipt Date: 20120914
  Transmission Date: 20130627
  Serious: Yes (Other)
  Sender: FDA-Public Use
  Company Number: CO-BRISTOL-MYERS SQUIBB COMPANY-16937641

PATIENT
  Sex: Male

DRUGS (1)
  1. ONGLYZA TABS [Suspect]

REACTIONS (2)
  - Renal failure [Unknown]
  - Drug ineffective [Unknown]
